FAERS Safety Report 6042675-X (Version None)
Quarter: 2009Q1

REPORT INFORMATION
  Report Type: 
  Country: None (occurrence: None)
  Receive Date: 20090119
  Receipt Date: 20090108
  Transmission Date: 20090719
  Serious: Yes (Hospitalization, Other)
  Sender: FDA-Public Use
  Company Number: PHHY2009BR00963

PATIENT
  Age: 78 Year
  Sex: Male
  Weight: 45 kg

DRUGS (4)
  1. FORASEQ [Suspect]
     Dosage: TWICE A DAY, 1 CAPSULE OF EACH ACTIVE COMPONENT IN THE MORNING AND IN THE AFTERNOON
     Dates: start: 20080101
  2. PREDNISONE [Concomitant]
     Indication: EMPHYSEMA
     Dosage: 1 TABLET/ 3 TIMES A DAY
  3. PREDNISONE [Concomitant]
     Dosage: 1 TABLET EVERY 12 HOURS
  4. PREDNISONE [Concomitant]
     Dosage: 1 TABLET/DAY

REACTIONS (8)
  - BLOOD PRESSURE DECREASED [None]
  - DYSPNOEA [None]
  - EMPHYSEMA [None]
  - FATIGUE [None]
  - PHYSIOTHERAPY [None]
  - PYREXIA [None]
  - SWELLING [None]
  - WEIGHT DECREASED [None]
